FAERS Safety Report 11613683 (Version 4)
Quarter: 2019Q2

REPORT INFORMATION
  Report Type: Report from Study
  Country: US (occurrence: US)
  Receive Date: 20151008
  Receipt Date: 20190524
  Transmission Date: 20190711
  Serious: Yes (Hospitalization)
  Sender: FDA-Public Use
  Company Number: US-VERTEX PHARMACEUTICALS-2015-004275

PATIENT
  Age: 33 Year
  Sex: Female

DRUGS (2)
  1. ORKAMBI [Suspect]
     Active Substance: IVACAFTOR\LUMACAFTOR
     Indication: CYSTIC FIBROSIS
     Dosage: REDUCED DOSE
     Route: 048
     Dates: start: 20150901, end: 201509
  2. ORKAMBI [Suspect]
     Active Substance: IVACAFTOR\LUMACAFTOR
     Dosage: UNK
     Route: 048
     Dates: start: 20150908, end: 20150911

REACTIONS (7)
  - Dyspnoea [Unknown]
  - Drug ineffective [Unknown]
  - Fatigue [Unknown]
  - Cough [Unknown]
  - Cystic fibrosis respiratory infection suppression [Unknown]
  - Influenza like illness [Unknown]
  - Respiration abnormal [Unknown]

NARRATIVE: CASE EVENT DATE: 201509
